FAERS Safety Report 6128602-5 (Version None)
Quarter: 2009Q1

REPORT INFORMATION
  Report Type: 
  Country: None (occurrence: None)
  Receive Date: 20090323
  Receipt Date: 20090312
  Transmission Date: 20090719
  Serious: No
  Sender: FDA-Public Use
  Company Number: US-B.I. PHARMACEUTICALS,INC./RIDGEFIELD-2008-BP-18030BP

PATIENT
  Age: 94 Year
  Sex: Male

DRUGS (8)
  1. FLOMAX [Suspect]
     Indication: POLLAKIURIA
     Dosage: .4MG
     Route: 048
     Dates: start: 20081001
  2. LEVSIN [Suspect]
     Indication: POLLAKIURIA
  3. ARICEPT [Concomitant]
  4. AMBIEN [Concomitant]
  5. PRILOSEC [Concomitant]
  6. SYNTHROID [Concomitant]
  7. LUPRON [Concomitant]
     Indication: PROSTATE CANCER
  8. DETROL [Concomitant]

REACTIONS (2)
  - DRUG INEFFECTIVE [None]
  - NOCTURIA [None]
